FAERS Safety Report 23677543 (Version 1)
Quarter: 2024Q1

REPORT INFORMATION
  Report Type: Report from Study
  Country: DE (occurrence: DE)
  Receive Date: 20240327
  Receipt Date: 20240327
  Transmission Date: 20240410
  Serious: Yes (Hospitalization)
  Sender: FDA-Public Use
  Company Number: DE-ABBVIE-5691309

PATIENT
  Age: 67 Year
  Sex: Female

DRUGS (4)
  1. RINVOQ [Suspect]
     Active Substance: UPADACITINIB
     Indication: Psoriatic arthropathy
     Route: 048
     Dates: start: 20210903
  2. IBUPROFEN [Concomitant]
     Active Substance: IBUPROFEN
     Indication: Product used for unknown indication
     Dosage: 7 DAYS PER WEEK
     Dates: start: 20230630
  3. CELECOXIB [Concomitant]
     Active Substance: CELECOXIB
     Indication: Product used for unknown indication
     Dosage: 7 DAYS PER WEEK
     Dates: start: 20230316, end: 20230629
  4. DICLOFENAC [Concomitant]
     Active Substance: DICLOFENAC
     Indication: Product used for unknown indication
     Dosage: 7 DAYS PER WEEK
     Dates: start: 20230630

REACTIONS (3)
  - Shoulder girdle pain [Recovered/Resolved]
  - Bursitis [Recovered/Resolved]
  - Tenosynovitis [Recovered/Resolved]

NARRATIVE: CASE EVENT DATE: 20230515
